FAERS Safety Report 6288468-X (Version None)
Quarter: 2009Q3

REPORT INFORMATION
  Report Type: 
  Country: None (occurrence: None)
  Receive Date: 20090729
  Receipt Date: 20090722
  Transmission Date: 20100115
  Serious: Yes (Life-Threatening, Hospitalization)
  Sender: FDA-Public Use
  Company Number: B0586086A

PATIENT
  Age: 41 Year
  Sex: Female

DRUGS (3)
  1. FENBID [Suspect]
     Indication: HEADACHE
     Dosage: 2CAP PER DAY
     Route: 048
     Dates: start: 20090712, end: 20090712
  2. AMOXICILLIN [Suspect]
     Indication: DRUG USE FOR UNKNOWN INDICATION
     Route: 065
  3. UNKNOWN DRUG [Suspect]
     Indication: HEADACHE
     Route: 065

REACTIONS (13)
  - ASTHENIA [None]
  - BLOOD PH INCREASED [None]
  - CEREBRAL HAEMORRHAGE [None]
  - CEREBRAL INFARCTION [None]
  - COMA [None]
  - DEAFNESS [None]
  - DIZZINESS [None]
  - DYSSTASIA [None]
  - HYPOACUSIS [None]
  - MENINGITIS [None]
  - MUSCULAR WEAKNESS [None]
  - VISION BLURRED [None]
  - VOMITING [None]
